FAERS Safety Report 19873842 (Version 1)
Quarter: 2021Q3

REPORT INFORMATION
  Report Type: Spontaneous
  Country: US (occurrence: US)
  Receive Date: 20210923
  Receipt Date: 20210923
  Transmission Date: 20211014
  Serious: No
  Sender: FDA-Public Use
  Company Number: None

PATIENT
  Age: 73 Year
  Sex: Male
  Weight: 100 kg

DRUGS (1)
  1. BAMLANIVIMAB (INV?BAMLANIVIMAB 35MG/ML INJ,SOLN) [Suspect]
     Active Substance: BAMLANIVIMAB
     Route: 042
     Dates: start: 20210920, end: 20210920

REACTIONS (1)
  - Hypotension [None]

NARRATIVE: CASE EVENT DATE: 20210920
